FAERS Safety Report 10823077 (Version 1)
Quarter: 2015Q1

REPORT INFORMATION
  Report Type: Spontaneous
  Country: SE (occurrence: None)
  Receive Date: 20150213
  Receipt Date: 20150213
  Transmission Date: 20150721
  Serious: Yes (Death)
  Sender: FDA-Public Use
  Company Number: 2015BI013781

PATIENT
  Sex: Male

DRUGS (8)
  1. WARAN [Concomitant]
     Active Substance: WARFARIN SODIUM
  2. RAMIPRIL. [Concomitant]
     Active Substance: RAMIPRIL
  3. MULTAQ [Concomitant]
     Active Substance: DRONEDARONE
  4. BISOPROLOL [Concomitant]
     Active Substance: BISOPROLOL
  5. MODIODAL [Concomitant]
     Active Substance: MODAFINIL
  6. BEHEPAN [Concomitant]
     Active Substance: HYDROXOCOBALAMIN
  7. FOLACIN [Concomitant]
     Active Substance: FOLIC ACID
  8. TYSABRI [Suspect]
     Active Substance: NATALIZUMAB
     Indication: MULTIPLE SCLEROSIS
     Route: 042
     Dates: start: 20070917, end: 20140925

REACTIONS (2)
  - Sudden death [None]
  - Cardiovascular disorder [None]

NARRATIVE: CASE EVENT DATE: 20141017
